FAERS Safety Report 16601613 (Version 1)
Quarter: 2019Q3

REPORT INFORMATION
  Report Type: Spontaneous
  Country: FR (occurrence: FR)
  Receive Date: 20190719
  Receipt Date: 20190719
  Transmission Date: 20191004
  Serious: Yes (Other)
  Sender: FDA-Public Use
  Company Number: FR-PFIZER INC-2019304067

PATIENT
  Age: 48 Year
  Sex: Male
  Weight: 86 kg

DRUGS (3)
  1. VERSATIS [Suspect]
     Active Substance: LIDOCAINE
     Dosage: UNK
     Route: 062
  2. STEROGYL [ERGOCALCIFEROL] [Concomitant]
     Dosage: 6 GTT, 1X/DAY
     Route: 048
  3. PAMIDRONATE DISODIUM. [Suspect]
     Active Substance: PAMIDRONATE DISODIUM
     Indication: COMPLEX REGIONAL PAIN SYNDROME
     Dosage: 60 MG, 1X/DAY (60 MG OVER 3 HOURS FOR 3 DAYS)
     Route: 042
     Dates: start: 20190304, end: 20190325

REACTIONS (1)
  - Venous thrombosis [Recovered/Resolved with Sequelae]

NARRATIVE: CASE EVENT DATE: 201903
